FAERS Safety Report 9971584 (Version 1)
Quarter: 2014Q1

REPORT INFORMATION
  Report Type: Report from Study
  Country: US (occurrence: US)
  Receive Date: 20140306
  Receipt Date: 20140306
  Transmission Date: 20141002
  Serious: No
  Sender: FDA-Public Use
  Company Number: US-ABBVIE-13P-163-1153053-00

PATIENT
  Age: 72 Year
  Sex: Male

DRUGS (14)
  1. HUMIRA [Suspect]
     Indication: CROHN^S DISEASE
     Dates: start: 20130829
  2. NEURONTIN [Concomitant]
     Indication: NEUROPATHY PERIPHERAL
  3. FOLIC ACID [Concomitant]
     Indication: PRODUCT USED FOR UNKNOWN INDICATION
     Dosage: 2 MG DAILY
  4. TOPROL [Concomitant]
     Indication: HYPERTENSION
     Dosage: 100MG IN THE MORNING AND 50MG IN THE EVENING
  5. LORTAB [Concomitant]
     Indication: PAIN
     Dosage: 10/500 MG AS NEEDED
  6. PREDNISONE [Concomitant]
     Indication: CROHN^S DISEASE
     Dosage: 5 MG DAILY
  7. FUROSEMIDE [Concomitant]
     Indication: LOCAL SWELLING
     Dosage: 20 MG DAILY
  8. FUROSEMIDE [Concomitant]
     Indication: CARDIAC PACEMAKER INSERTION
  9. ALLOPURINOL [Concomitant]
     Indication: PRODUCT USED FOR UNKNOWN INDICATION
     Dosage: 300 MG DAILY
  10. MULTIVITAMIN [Concomitant]
     Indication: PRODUCT USED FOR UNKNOWN INDICATION
  11. VITAMIN D3 [Concomitant]
     Indication: PRODUCT USED FOR UNKNOWN INDICATION
     Dosage: 1000 MG DAILY
  12. IRON [Concomitant]
     Indication: PRODUCT USED FOR UNKNOWN INDICATION
     Dosage: 65 MG DAILY
  13. ROPINIROLE [Concomitant]
     Indication: PRODUCT USED FOR UNKNOWN INDICATION
     Dosage: 1 IN THE MORNING AND 2 IN THE EVENING
  14. ENDOMYCIN [Concomitant]
     Indication: GOUT

REACTIONS (1)
  - Injection site pain [Recovered/Resolved]
